FAERS Safety Report 18204576 (Version 1)
Quarter: 2020Q3

REPORT INFORMATION
  Report Type: Spontaneous
  Country: AU (occurrence: AU)
  Receive Date: 20200827
  Receipt Date: 20200827
  Transmission Date: 20201103
  Serious: Yes (Hospitalization)
  Sender: FDA-Public Use
  Company Number: AU-JNJFOC-20200826961

PATIENT
  Age: 10 Year
  Sex: Female

DRUGS (2)
  1. TRABECTEDIN [Suspect]
     Active Substance: TRABECTEDIN
     Indication: PRODUCT USED FOR UNKNOWN INDICATION
     Route: 065
  2. CYCLIZINE HYDROCHLORIDE [Concomitant]
     Active Substance: CYCLIZINE HYDROCHLORIDE
     Route: 065

REACTIONS (8)
  - Liver function test abnormal [Unknown]
  - Product use issue [Unknown]
  - Blood creatine abnormal [Unknown]
  - Capillary leak syndrome [Unknown]
  - Renal tubular necrosis [Unknown]
  - Akinaesthesia [Unknown]
  - Acute pulmonary oedema [Unknown]
  - Off label use [Unknown]

NARRATIVE: CASE EVENT DATE: 20190327
